FAERS Safety Report 5506773-9 (Version None)
Quarter: 2007Q4

REPORT INFORMATION
  Report Type: 
  Country: None (occurrence: None)
  Receive Date: 20071101
  Receipt Date: 20071025
  Transmission Date: 20080405
  Serious: Yes (Hospitalization)
  Sender: FDA-Public Use
  Company Number: 2007333935

PATIENT
  Age: 64 Year
  Sex: Female
  Weight: 66.7 kg

DRUGS (1)
  1. BENADRYL [Suspect]
     Indication: HYPERSENSITIVITY
     Dosage: 2 CAPSULES TWICE, ORAL
     Route: 048
     Dates: start: 20071022, end: 20071022

REACTIONS (1)
  - PRESYNCOPE [None]
